FAERS Safety Report 21938140 (Version 1)
Quarter: 2023Q1

REPORT INFORMATION
  Report Type: Spontaneous
  Country: US (occurrence: US)
  Receive Date: 20230201
  Receipt Date: 20230201
  Transmission Date: 20230417
  Serious: Yes (Other)
  Sender: FDA-Public Use
  Company Number: US-INCYTE CORPORATION-2021IN010206

PATIENT

DRUGS (1)
  1. PEMAZYRE [Suspect]
     Active Substance: PEMIGATINIB
     Indication: Cholangiocarcinoma
     Route: 065

REACTIONS (4)
  - Calciphylaxis [Unknown]
  - Fibrin D dimer increased [Unknown]
  - Prothrombin time prolonged [Unknown]
  - Blood phosphorus increased [Unknown]
